FAERS Safety Report 8484639-2 (Version None)
Quarter: 2012Q3

REPORT INFORMATION
  Report Type: 
  Country: None (occurrence: None)
  Receive Date: 20120703
  Receipt Date: 20120418
  Transmission Date: 20120928
  Serious: No
  Sender: FDA-Public Use
  Company Number: US-TEVA-334307USA

PATIENT
  Sex: Female
  Weight: 55.388 kg

DRUGS (2)
  1. NUVIGIL [Suspect]
     Indication: CIRCADIAN RHYTHM SLEEP DISORDER
     Route: 048
     Dates: start: 20120201
  2. CONTRACEPTIVES NOS [Concomitant]
     Route: 048
     Dates: start: 20120201

REACTIONS (6)
  - MENSTRUAL DISORDER [None]
  - DIZZINESS [None]
  - HEADACHE [None]
  - NAUSEA [None]
  - MUSCLE SPASMS [None]
  - ABDOMINAL PAIN [None]
